FAERS Safety Report 6240060-9 (Version None)
Quarter: 2009Q2

REPORT INFORMATION
  Report Type: 
  Country: None (occurrence: None)
  Receive Date: 20090623
  Receipt Date: 20090615
  Transmission Date: 20091009
  Serious: Yes (Death, Life-Threatening)
  Sender: FDA-Public Use
  Company Number: PT-ROCHE-634787

PATIENT
  Age: 89 Year
  Sex: Male
  Weight: 57 kg

DRUGS (1)
  1. XELODA [Suspect]
     Route: 048
     Dates: start: 20090302, end: 20090518

REACTIONS (3)
  - DIARRHOEA [None]
  - DISEASE PROGRESSION [None]
  - VOMITING [None]
